FAERS Safety Report 5087120-6 (Version None)
Quarter: 2006Q3

REPORT INFORMATION
  Report Type: 
  Country: None (occurrence: None)
  Receive Date: 20060821
  Receipt Date: 20060707
  Transmission Date: 20061208
  Serious: Yes (Other)
  Sender: FDA-Public Use
  Company Number: 2006083621

PATIENT
  Age: 78 Year
  Sex: Male

DRUGS (1)
  1. HALCION [Suspect]
     Indication: TINNITUS
     Dosage: 0.25 MG, ORAL
     Route: 048
     Dates: start: 20060628

REACTIONS (3)
  - DRUG EFFECT DECREASED [None]
  - HAEMORRHAGE [None]
  - MALNUTRITION [None]
